FAERS Safety Report 17251625 (Version 2)
Quarter: 2020Q1

REPORT INFORMATION
  Report Type: Spontaneous
  Country: SE (occurrence: SE)
  Receive Date: 20200109
  Receipt Date: 20200121
  Transmission Date: 20200409
  Serious: Yes (Hospitalization)
  Sender: FDA-Public Use
  Company Number: SE-PFIZER INC-2020006230

PATIENT
  Sex: Female

DRUGS (6)
  1. SERTRALINE HCL [Suspect]
     Active Substance: SERTRALINE HYDROCHLORIDE
     Dosage: 1 G, SINGLE
     Route: 048
     Dates: start: 20190219, end: 20190219
  2. PROPAVAN [Suspect]
     Active Substance: PROPIOMAZINE
     Dosage: 500 MG, SINGLE
     Route: 048
     Dates: start: 20190219, end: 20190219
  3. LYRICA [Suspect]
     Active Substance: PREGABALIN
     Dosage: 2 G, SINGLE
     Route: 048
     Dates: start: 20190219, end: 20190219
  4. TIKACILLIN [Suspect]
     Active Substance: PENICILLIN V POTASSIUM
     Dosage: AROUND 20 G
     Route: 048
     Dates: start: 20190219, end: 20190219
  5. EXLUTENA [Suspect]
     Active Substance: LYNESTRENOL
     Dosage: 10 MG, SINGLE
     Route: 048
     Dates: start: 20190219, end: 20190219
  6. FLAGYL [Suspect]
     Active Substance: METRONIDAZOLE\METRONIDAZOLE HYDROCHLORIDE
     Dosage: 8 G, SINGLE
     Route: 048
     Dates: start: 20190219, end: 20190219

REACTIONS (4)
  - Intentional overdose [Unknown]
  - Intentional self-injury [Unknown]
  - Vomiting [Unknown]
  - Paraesthesia [Unknown]

NARRATIVE: CASE EVENT DATE: 20190219
